FAERS Safety Report 5620955-7 (Version None)
Quarter: 2008Q1

REPORT INFORMATION
  Report Type: 
  Country: None (occurrence: None)
  Receive Date: 20080208
  Receipt Date: 20080128
  Transmission Date: 20080703
  Serious: Yes (Other)
  Sender: FDA-Public Use
  Company Number: JP-PFIZER INC-2008009536

PATIENT
  Age: 62 Year
  Sex: Male

DRUGS (5)
  1. CARDENALIN [Suspect]
     Indication: HYPERTENSION
     Dosage: DAILY DOSE:1MG
     Route: 048
  2. NOVOLIN R [Suspect]
     Indication: DIABETES MELLITUS
     Route: 058
  3. PAXIL [Suspect]
     Indication: INSOMNIA
     Dosage: DAILY DOSE:10MG
     Route: 048
  4. ADALAT [Concomitant]
     Route: 048
  5. OMEPRAL [Concomitant]
     Route: 048

REACTIONS (2)
  - ELECTROCARDIOGRAM QT PROLONGED [None]
  - LOSS OF CONSCIOUSNESS [None]
